FAERS Safety Report 6255356-4 (Version None)
Quarter: 2009Q3

REPORT INFORMATION
  Report Type: 
  Country: None (occurrence: None)
  Receive Date: 20090702
  Receipt Date: 20090623
  Transmission Date: 20100115
  Serious: Yes (Life-Threatening, Hospitalization)
  Sender: FDA-Public Use
  Company Number: PL-AMGEN-US353915

PATIENT
  Sex: Male
  Weight: 17 kg

DRUGS (2)
  1. ENBREL [Suspect]
     Indication: JUVENILE ARTHRITIS
     Route: 058
     Dates: start: 20070101, end: 20090601
  2. ENBREL [Suspect]
     Route: 058
     Dates: start: 20090601

REACTIONS (2)
  - AGRANULOCYTOSIS [None]
  - HISTIOCYTOSIS HAEMATOPHAGIC [None]
